FAERS Safety Report 16368662 (Version 1)
Quarter: 2019Q2

REPORT INFORMATION
  Report Type: Spontaneous
  Country: SE (occurrence: SE)
  Receive Date: 20190529
  Receipt Date: 20190529
  Transmission Date: 20190711
  Serious: Yes (Hospitalization, Other)
  Sender: FDA-Public Use
  Company Number: SE-MYLANLABS-2019M1049910

PATIENT
  Age: 20 Year
  Sex: Female

DRUGS (3)
  1. HUMIRA [Suspect]
     Active Substance: ADALIMUMAB
     Indication: CROHN^S DISEASE
     Dosage: UNK
  2. HUMIRA [Suspect]
     Active Substance: ADALIMUMAB
     Indication: COLITIS
     Dosage: UNK
     Route: 058
     Dates: start: 2014, end: 2016
  3. AZATHIOPRINE. [Suspect]
     Active Substance: AZATHIOPRINE
     Indication: PRODUCT USED FOR UNKNOWN INDICATION
     Dosage: EQUAL TO APPROX. 2 MG/KG.
     Route: 065
     Dates: start: 2009

REACTIONS (16)
  - Proctalgia [Unknown]
  - Fistula discharge [Unknown]
  - Hepatosplenomegaly [Unknown]
  - Renal impairment [Unknown]
  - Transaminases increased [Unknown]
  - Epstein-Barr virus infection [Unknown]
  - Lymphadenopathy [Unknown]
  - Haemophagocytic lymphohistiocytosis [Unknown]
  - Weight decreased [Unknown]
  - Gastrointestinal oedema [Unknown]
  - Cytopenia [Unknown]
  - Malaise [Unknown]
  - Bone marrow failure [Unknown]
  - Sepsis [Unknown]
  - Appendicitis [Unknown]
  - Influenza like illness [Unknown]

NARRATIVE: CASE EVENT DATE: 201611
